FAERS Safety Report 17994778 (Version 1)
Quarter: 2020Q3

REPORT INFORMATION
  Report Type: Report from Study
  Country: US (occurrence: US)
  Receive Date: 20200708
  Receipt Date: 20200708
  Transmission Date: 20201103
  Serious: Yes (Hospitalization)
  Sender: FDA-Public Use
  Company Number: US-BAXTER-2020BAX013799

PATIENT
  Sex: Male
  Weight: 68 kg

DRUGS (18)
  1. INOTUZUMAB OZOGAMICIN [Suspect]
     Active Substance: INOTUZUMAB OZOGAMICIN
     Indication: PRECURSOR T-LYMPHOBLASTIC LEUKAEMIA ACUTE
     Dosage: TOTAL DOSE ADMINISTERED IN 6TH COURSE: 0 MG
     Route: 065
     Dates: start: 20191009
  2. METHOTREXATE SODIUM. [Suspect]
     Active Substance: METHOTREXATE SODIUM
     Dosage: LAST ADMINISTERED DATE
     Route: 065
     Dates: start: 20200529, end: 20200529
  3. VINCRISTINE SULFATE. [Suspect]
     Active Substance: VINCRISTINE SULFATE
     Dosage: LAST ADMINISTERED DATE
     Route: 065
     Dates: start: 20200508, end: 20200508
  4. DOXIL [Suspect]
     Active Substance: DOXORUBICIN HYDROCHLORIDE
     Indication: PRECURSOR T-LYMPHOBLASTIC LEUKAEMIA ACUTE
     Dosage: 1ST TO 6TH COURSE, TOTAL DOSE ADMINISTERED IN 6TH COURSE: 135 MG
     Route: 065
  5. DEXAMETHASONE. [Suspect]
     Active Substance: DEXAMETHASONE
     Indication: PRECURSOR T-LYMPHOBLASTIC LEUKAEMIA ACUTE
     Dosage: 1ST TO 6TH COURSE, TOTAL DOSE ADMINISTERED IN 6TH COURSE 126 MG
     Route: 065
  6. ONCASPAR [Suspect]
     Active Substance: PEGASPARGASE
     Indication: PRECURSOR T-LYMPHOBLASTIC LEUKAEMIA ACUTE
     Dosage: 1ST TO 6TH COURSE, TOTAL DOSE ADMINISTERED 6TH COURSE : 3525 UNIT
     Route: 065
  7. CYCLOPHOSPHAMIDE FOR INJECTION, USP [Suspect]
     Active Substance: CYCLOPHOSPHAMIDE
     Indication: PRECURSOR T-LYMPHOBLASTIC LEUKAEMIA ACUTE
     Dosage: 1ST TO 6TH COURSE, TOTAL DOSE ADMINISTERED IN 6TH COURSE: 1800 MG
     Route: 065
  8. METHOTREXATE SODIUM. [Suspect]
     Active Substance: METHOTREXATE SODIUM
     Indication: PRECURSOR T-LYMPHOBLASTIC LEUKAEMIA ACUTE
     Dosage: 1ST TO 6TH COURSES, TOTAL DOSE ADMINISTERED IN 6TH COURSE : 45 MG
     Route: 065
  9. VINCRISTINE SULFATE. [Suspect]
     Active Substance: VINCRISTINE SULFATE
     Indication: PRECURSOR T-LYMPHOBLASTIC LEUKAEMIA ACUTE
     Dosage: 1ST TO 6TH COURSE, TOTAL DOSE ADMINISTERED IN 6TH COURSE 6 MG
     Route: 065
  10. ONCASPAR [Suspect]
     Active Substance: PEGASPARGASE
     Dosage: LAST ADMINISTERED DATE
     Route: 065
     Dates: start: 20200427, end: 20200427
  11. THIOGUANINE [Suspect]
     Active Substance: THIOGUANINE
     Indication: PRECURSOR T-LYMPHOBLASTIC LEUKAEMIA ACUTE
     Dosage: 1ST TO 6TH COURSE, TOTAL DOSE ADMINISTERED IN 6TH  COURSE : 1120 MG
     Route: 065
  12. CYTARABINE. [Suspect]
     Active Substance: CYTARABINE
     Indication: PRECURSOR T-LYMPHOBLASTIC LEUKAEMIA ACUTE
     Dosage: 1ST TO 6TH COURSE, TOTAL DOSE ADMINISTERED IN 6TH COURSE: 1080 MG
     Route: 065
  13. DEXAMETHASONE. [Suspect]
     Active Substance: DEXAMETHASONE
     Dosage: LAST ADMINISTERED DATE
     Route: 065
     Dates: start: 20200514, end: 20200514
  14. INOTUZUMAB OZOGAMICIN [Suspect]
     Active Substance: INOTUZUMAB OZOGAMICIN
     Dosage: LAST ADMINISTERED DATE
     Route: 065
     Dates: start: 20191120, end: 20191120
  15. CYTARABINE. [Suspect]
     Active Substance: CYTARABINE
     Dosage: LAST ADMINISTERED DATE
     Route: 065
     Dates: start: 20200601, end: 20200601
  16. THIOGUANINE [Suspect]
     Active Substance: THIOGUANINE
     Dosage: LAST ADMINISTERED DATE
     Route: 065
     Dates: start: 20200601, end: 20200601
  17. DOXIL [Suspect]
     Active Substance: DOXORUBICIN HYDROCHLORIDE
     Dosage: LAST ADMINISTERED DATE
     Route: 065
     Dates: start: 20200508, end: 20200508
  18. CYCLOPHOSPHAMIDE FOR INJECTION, USP [Suspect]
     Active Substance: CYCLOPHOSPHAMIDE
     Dosage: LAST ADMINISTERED DATE
     Route: 065
     Dates: start: 20200522, end: 20200522

REACTIONS (1)
  - Febrile neutropenia [Not Recovered/Not Resolved]

NARRATIVE: CASE EVENT DATE: 20200601
